FAERS Safety Report 24445718 (Version 1)
Quarter: 2024Q4

REPORT INFORMATION
  Report Type: Spontaneous
  Country: GB (occurrence: GB)
  Receive Date: 20241016
  Receipt Date: 20241016
  Transmission Date: 20250114
  Serious: Yes (Other)
  Sender: MYLAN
  Company Number: GB-MHRA-TPP43454034C4581751YC1728555402532

PATIENT
  Age: 33 Year
  Sex: Female
  Weight: 70 kg

DRUGS (9)
  1. DOXYCYCLINE [Suspect]
     Active Substance: DOXYCYCLINE
     Indication: Ill-defined disorder
     Dosage: 200 MILLIGRAM (TWO NOW)
     Route: 065
  2. DOXYCYCLINE [Suspect]
     Active Substance: DOXYCYCLINE
     Dosage: 100 MILLIGRAM, QD (TWO NOW THEN ONE DAILY)
     Route: 065
     Dates: start: 20241008
  3. FLUTIFORM [Concomitant]
     Active Substance: FLUTIFORM
     Indication: Ill-defined disorder
     Dosage: 2 DOSAGE FORM, BID (2 PUFF TWICE A DAY)
     Route: 065
     Dates: start: 20240510
  4. OMEPRAZOLE [Concomitant]
     Active Substance: OMEPRAZOLE
     Indication: Ill-defined disorder
     Dosage: 1 DOSAGE FORM, QD (TAKE ONE CAPSULE DAY)
     Route: 065
     Dates: start: 20240603
  5. PREDNISOLONE [Concomitant]
     Active Substance: PREDNISOLONE
     Indication: Ill-defined disorder
     Dosage: 6 DOSAGE FORM, QD (6 TABLETS ONCE DAILY FOR 5 DAYS)
     Route: 065
     Dates: start: 20241008
  6. SPIRIVA [Concomitant]
     Active Substance: TIOTROPIUM BROMIDE MONOHYDRATE
     Indication: Ill-defined disorder
     Dosage: 2 DOSAGE FORM, QD (TWO PUFFS ONCE DAILY)
     Route: 055
     Dates: start: 20230605
  7. ALBUTEROL [Concomitant]
     Active Substance: ALBUTEROL
     Indication: Ill-defined disorder
     Dosage: 2 DOSAGE FORM, PRN (2 PUFFS WHEN REQUIRED FOUR TIMES A DAY)
     Route: 065
     Dates: start: 20240222
  8. DESOGESTREL [Concomitant]
     Active Substance: DESOGESTREL
     Indication: Ill-defined disorder
     Dosage: 1 DOSAGE FORM, QD (TAKE ONE DAILY)
     Route: 065
     Dates: start: 20240403
  9. FEXOFENADINE [Concomitant]
     Active Substance: FEXOFENADINE HYDROCHLORIDE
     Indication: Ill-defined disorder
     Dosage: 1 DOSAGE FORM, QD (TAKE ONE EVERY DAY)
     Route: 065
     Dates: start: 20240510

REACTIONS (2)
  - Rash [Recovering/Resolving]
  - Pruritus [Unknown]
